FAERS Safety Report 5635652-1 (Version None)
Quarter: 2008Q1

REPORT INFORMATION
  Report Type: 
  Country: None (occurrence: None)
  Receive Date: 20080221
  Receipt Date: 20080208
  Transmission Date: 20080703
  Serious: Yes (Other)
  Sender: FDA-Public Use
  Company Number: 2008003683

PATIENT
  Sex: Female

DRUGS (7)
  1. CETIRIZINE HCL [Suspect]
     Indication: FOOD ALLERGY
     Dosage: 10 MG, ORAL
     Route: 048
     Dates: start: 20080202, end: 20080203
  2. ALFACALCIDOL (ALFACALCIDOL) [Concomitant]
  3. FAMOTIDINE [Concomitant]
  4. FEXOFENADINE HCL [Concomitant]
  5. EMEDASTINE FUMARATE (EMEDASTINE FUMARATE) [Concomitant]
  6. SUPLATAST TOSILATE (SUPLATAST TOSILATE) [Concomitant]
  7. CELESTAMINE TAB [Concomitant]

REACTIONS (4)
  - HEADACHE [None]
  - NAUSEA [None]
  - THIRST [None]
  - TREMOR [None]
